FAERS Safety Report 6915584-9 (Version None)
Quarter: 2010Q3

REPORT INFORMATION
  Report Type: 
  Country: None (occurrence: None)
  Receive Date: 20100804
  Receipt Date: 20100729
  Transmission Date: 20110219
  Serious: Yes (Death)
  Sender: FDA-Public Use
  Company Number: TCI2010A03003

PATIENT
  Age: 66 Year
  Sex: Female

DRUGS (3)
  1. LANSOPRAZOLE [Suspect]
  2. BETAMIPRON, PANIPENEM [Suspect]
     Dosage: INJECTION
     Route: 042
     Dates: start: 20071101
  3. LOXOPROFEN SODIUM [Suspect]

REACTIONS (4)
  - HAEMATEMESIS [None]
  - ILEUS PARALYTIC [None]
  - OLIGURIA [None]
  - PSEUDOMEMBRANOUS COLITIS [None]
